FAERS Safety Report 8082633-7 (Version None)
Quarter: 2012Q1

REPORT INFORMATION
  Report Type: 
  Country: None (occurrence: None)
  Receive Date: 20120127
  Receipt Date: 20110224
  Transmission Date: 20120608
  Serious: No
  Sender: FDA-Public Use
  Company Number: US-ABBOTT-11P-163-0707327-00

PATIENT
  Age: 63 Year
  Sex: Female

DRUGS (3)
  1. APRISO [Concomitant]
     Indication: COLITIS ULCERATIVE
  2. AZATHIOPRINE [Concomitant]
     Indication: ARTHRITIS
  3. HUMIRA [Suspect]
     Indication: RHEUMATOID ARTHRITIS
     Dates: start: 20110223

REACTIONS (2)
  - COUGH [None]
  - SINUS CONGESTION [None]
